FAERS Safety Report 4748752-5 (Version None)
Quarter: 2005Q3

REPORT INFORMATION
  Report Type: 
  Country: None (occurrence: None)
  Receive Date: 20050818
  Receipt Date: 20050806
  Transmission Date: 20060218
  Serious: Yes (Hospitalization)
  Sender: FDA-Public Use
  Company Number: 05-000599

PATIENT
  Age: 63 Year
  Sex: Female

DRUGS (1)
  1. PYRIDIUM(PHENAZOPYRIDINE HYDROCHLORIDE) TABLET, 100MG [Suspect]
     Indication: URINARY TRACT INFECTION
     Dosage: ORAL
     Route: 048

REACTIONS (3)
  - CYANOSIS [None]
  - FATIGUE [None]
  - SULPHAEMOGLOBINAEMIA [None]
